FAERS Safety Report 24638833 (Version 1)
Quarter: 2024Q4

REPORT INFORMATION
  Report Type: Spontaneous
  Country: US (occurrence: US)
  Receive Date: 20241119
  Receipt Date: 20241119
  Transmission Date: 20250115
  Serious: No
  Sender: MISSION PHARMACAL COMPANY
  Company Number: US-Mission Pharmacal Company-2165424

PATIENT
  Age: 79 Year
  Sex: Female

DRUGS (17)
  1. GABAPENTIN [Suspect]
     Active Substance: GABAPENTIN
  2. THIOLA [Concomitant]
     Active Substance: TIOPRONIN
     Dates: start: 20150113
  3. TRAZODONE [Concomitant]
     Active Substance: TRAZODONE HYDROCHLORIDE
  4. SOMA [Concomitant]
     Active Substance: CARISOPRODOL
  5. RASUVO [Concomitant]
     Active Substance: METHOTREXATE SODIUM
  6. PROPRANOLOL [Concomitant]
     Active Substance: PROPRANOLOL HYDROCHLORIDE
  7. PREDNISONE [Concomitant]
     Active Substance: PREDNISONE
  8. OMEPRAZOLE [Concomitant]
     Active Substance: OMEPRAZOLE
  9. LOVASTATIN [Concomitant]
     Active Substance: LOVASTATIN
  10. LISINOPRIL [Concomitant]
     Active Substance: LISINOPRIL
  11. JANUVIA [Concomitant]
     Active Substance: SITAGLIPTIN PHOSPHATE
  12. INVOKANA [Concomitant]
     Active Substance: CANAGLIFLOZIN
  13. IBUPROFEN [Concomitant]
     Active Substance: IBUPROFEN
  14. GEMTESA [Concomitant]
     Active Substance: VIBEGRON
  15. FOLIC ACID [Concomitant]
     Active Substance: FOLIC ACID
  16. COLESEVELAM [Concomitant]
     Active Substance: COLESEVELAM
  17. CITALOPRAM [Concomitant]
     Active Substance: CITALOPRAM

REACTIONS (1)
  - Dizziness [Unknown]
